FAERS Safety Report 5902278-1 (Version None)
Quarter: 2008Q3

REPORT INFORMATION
  Report Type: 
  Country: None (occurrence: None)
  Receive Date: 20080929
  Receipt Date: 20080708
  Transmission Date: 20090109
  Serious: No
  Sender: FDA-Public Use
  Company Number: US-BAUSCH-2008BL003006

PATIENT
  Age: 64 Year
  Sex: Female

DRUGS (3)
  1. ALAWAY [Suspect]
     Indication: EYE ALLERGY
     Route: 047
     Dates: start: 20080705, end: 20080705
  2. GENTEAL [Concomitant]
     Route: 047
  3. MULTI-VITAMINS [Concomitant]

REACTIONS (1)
  - EYE IRRITATION [None]
